FAERS Safety Report 12584112 (Version 1)
Quarter: 2016Q3

REPORT INFORMATION
  Report Type: Report from Study
  Country: US (occurrence: US)
  Receive Date: 20160722
  Receipt Date: 20160722
  Transmission Date: 20161109
  Serious: Yes (Hospitalization, Other)
  Sender: FDA-Public Use
  Company Number: US-MYLANLABS-2016M1030283

PATIENT

DRUGS (7)
  1. FONDAPARINUX [Suspect]
     Active Substance: FONDAPARINUX
     Dosage: 4 UNK, UNK
     Route: 058
     Dates: start: 20160130
  2. ARIMIDEX [Concomitant]
     Active Substance: ANASTROZOLE
     Indication: PRODUCT USED FOR UNKNOWN INDICATION
     Dosage: UNK
     Route: 065
  3. INVESTIGATIONAL ANTINEOPLASTIC DRUGS [Suspect]
     Active Substance: INVESTIGATIONAL PRODUCT
     Dosage: 200 MG, QD
     Route: 048
     Dates: start: 20160211
  4. INVESTIGATIONAL ANTINEOPLASTIC DRUGS [Suspect]
     Active Substance: INVESTIGATIONAL PRODUCT
     Indication: OVARIAN CANCER METASTATIC
     Dosage: 200 MG, QD
     Route: 048
     Dates: start: 20160120, end: 20160130
  5. LOPRESSOR [Concomitant]
     Active Substance: METOPROLOL TARTRATE
     Indication: PRODUCT USED FOR UNKNOWN INDICATION
     Dosage: UNK
     Route: 065
  6. FONDAPARINUX [Suspect]
     Active Substance: FONDAPARINUX
     Indication: DEEP VEIN THROMBOSIS
     Dosage: UNK
     Route: 065
  7. MK 3475 [Suspect]
     Active Substance: PEMBROLIZUMAB
     Indication: OVARIAN CANCER METASTATIC
     Dosage: 200 MG, Q21D
     Route: 042
     Dates: start: 20160120

REACTIONS (1)
  - Cardiac tamponade [Recovered/Resolved]

NARRATIVE: CASE EVENT DATE: 20160130
